FAERS Safety Report 24863072 (Version 4)
Quarter: 2025Q1

REPORT INFORMATION
  Report Type: Spontaneous
  Country: US (occurrence: US)
  Receive Date: 20250120
  Receipt Date: 20250327
  Transmission Date: 20250409
  Serious: No
  Sender: PFIZER
  Company Number: US-PFIZER INC-202500010427

PATIENT
  Age: 1 Year
  Sex: Male

DRUGS (2)
  1. GENOTROPIN [Suspect]
     Active Substance: SOMATROPIN
     Indication: Short stature
     Dosage: 0.2 MG, ALTERNATE DAY [DOSE IS 0.3MG, ROTATES BETWEEN 0.2MG AND 0.4MG, EVERY OTHER DAY]
     Dates: start: 202501
  2. GENOTROPIN [Suspect]
     Active Substance: SOMATROPIN
     Dosage: 0.4 MG, ALTERNATE DAY [DOSE IS 0.3MG, ROTATES BETWEEN 0.2MG AND 0.4MG, EVERY OTHER DAY]
     Dates: start: 202501

REACTIONS (4)
  - Device failure [Unknown]
  - Device delivery system issue [Unknown]
  - Product communication issue [Unknown]
  - Device leakage [Unknown]

NARRATIVE: CASE EVENT DATE: 20250115
